FAERS Safety Report 16530262 (Version 15)
Quarter: 2020Q4

REPORT INFORMATION
  Report Type: Report from Study
  Country: JP (occurrence: JP)
  Receive Date: 20190704
  Receipt Date: 20201213
  Transmission Date: 20210113
  Serious: Yes (Hospitalization, Other)
  Sender: FDA-Public Use
  Company Number: JP-ASTELLAS-2019JP013046

PATIENT
  Age: 75 Year
  Sex: Male
  Weight: 45 kg

DRUGS (8)
  1. ASP2215 [Suspect]
     Active Substance: GILTERITINIB
     Route: 048
     Dates: start: 20200117
  2. ASP2215 [Suspect]
     Active Substance: GILTERITINIB
     Route: 048
  3. ASP2215 [Suspect]
     Active Substance: GILTERITINIB
     Route: 048
     Dates: start: 20200826
  4. ASP2215 [Suspect]
     Active Substance: GILTERITINIB
     Route: 048
     Dates: start: 20190708
  5. ASP2215 [Suspect]
     Active Substance: GILTERITINIB
     Route: 048
     Dates: start: 20190801
  6. ASP2215 [Suspect]
     Active Substance: GILTERITINIB
     Route: 048
     Dates: start: 20190814
  7. HYDREA [Suspect]
     Active Substance: HYDROXYUREA
     Indication: ACUTE MYELOID LEUKAEMIA
     Dosage: 500 MG/DAY, UNKNOWN FREQ.
     Route: 048
     Dates: start: 20190614, end: 20190618
  8. ASP2215 [Suspect]
     Active Substance: GILTERITINIB
     Indication: ACUTE MYELOID LEUKAEMIA REFRACTORY
     Route: 048
     Dates: start: 20190618, end: 20190624

REACTIONS (5)
  - Off label use [Unknown]
  - Blast cell count increased [Not Recovered/Not Resolved]
  - Pneumonia [Recovered/Resolved]
  - Neutropenia [Recovering/Resolving]
  - Acute myeloid leukaemia recurrent [Recovered/Resolved]

NARRATIVE: CASE EVENT DATE: 20190623
